FAERS Safety Report 15994767 (Version 1)
Quarter: 2019Q1

REPORT INFORMATION
  Report Type: Spontaneous
  Country: US (occurrence: US)
  Receive Date: 20190222
  Receipt Date: 20190222
  Transmission Date: 20190418
  Serious: No
  Sender: FDA-Public Use
  Company Number: US-TEVA-2019-US-1012556

PATIENT
  Sex: Female

DRUGS (1)
  1. CINQAIR [Suspect]
     Active Substance: RESLIZUMAB
     Indication: ASTHMA
     Route: 042
     Dates: start: 201712

REACTIONS (6)
  - Eye pruritus [Unknown]
  - Rash erythematous [Unknown]
  - Rash pruritic [Unknown]
  - Urticaria [Unknown]
  - Upper respiratory tract congestion [Unknown]
  - Nasopharyngitis [Unknown]
